FAERS Safety Report 8266319-1 (Version None)
Quarter: 2012Q2

REPORT INFORMATION
  Report Type: 
  Country: None (occurrence: None)
  Receive Date: 20120406
  Receipt Date: 20120402
  Transmission Date: 20120825
  Serious: Yes (Other)
  Sender: FDA-Public Use
  Company Number: US-AMGEN-USASP2011050880

PATIENT
  Age: 64 Year
  Sex: Female
  Weight: 42.63 kg

DRUGS (3)
  1. ARANESP [Suspect]
     Indication: ANAEMIA OF MALIGNANT DISEASE
     Dosage: 300 MUG, Q3WK
     Dates: start: 20110501, end: 20110801
  2. VELCADE [Concomitant]
  3. EPOGEN [Suspect]
     Indication: DIALYSIS
     Dosage: UNK

REACTIONS (2)
  - RENAL FAILURE [None]
  - BLOOD COUNT ABNORMAL [None]
